FAERS Safety Report 8798312 (Version 2)
Quarter: 2013Q1

REPORT INFORMATION
  Report Type: Spontaneous
  Country: US (occurrence: US)
  Receive Date: 20120920
  Receipt Date: 20130115
  Transmission Date: 20140127
  Serious: No
  Sender: FDA-Public Use
  Company Number: US-009507513-1205USA05576

PATIENT
  Age: 87 Year
  Sex: Male

DRUGS (2)
  1. AZASITE [Suspect]
     Indication: BLEPHARITIS
     Dosage: UNK UNK, BID
     Route: 047
     Dates: start: 20120521
  2. AZASITE [Suspect]
     Dosage: UNK, HS
     Route: 047
     Dates: start: 20120523

REACTIONS (6)
  - Visual impairment [Recovered/Resolved]
  - Liquid product physical issue [Unknown]
  - Eye irritation [Recovered/Resolved]
  - Inappropriate schedule of drug administration [Unknown]
  - Eye pain [Recovered/Resolved]
  - Dry eye [Recovered/Resolved]
